FAERS Safety Report 8063551-7 (Version None)
Quarter: 2012Q1

REPORT INFORMATION
  Report Type: 
  Country: None (occurrence: None)
  Receive Date: 20120123
  Receipt Date: 20120112
  Transmission Date: 20120608
  Serious: Yes (Hospitalization, Other)
  Sender: FDA-Public Use
  Company Number: US-BRISTOL-MYERS SQUIBB COMPANY-15301120

PATIENT
  Age: 55 Year
  Sex: Female

DRUGS (10)
  1. ASPIRIN [Concomitant]
  2. ONGLYZA [Suspect]
     Indication: DIABETES MELLITUS
     Route: 048
     Dates: start: 20100524, end: 20100701
  3. TENORMIN [Concomitant]
     Indication: BLOOD PRESSURE MANAGEMENT
  4. METFORMIN HCL [Concomitant]
     Indication: DIABETES MELLITUS
  5. POTASSIUM CHLORIDE [Concomitant]
  6. RAMIPRIL [Concomitant]
     Indication: PROPHYLAXIS
  7. ZETIA [Concomitant]
  8. IBUPROFEN (ADVIL) [Concomitant]
  9. HYDROCHLOROTHIAZIDE [Concomitant]
  10. NIACIN [Concomitant]

REACTIONS (3)
  - CHEST PAIN [None]
  - LYMPHOCYTIC LEUKAEMIA [None]
  - FATIGUE [None]
